FAERS Safety Report 18526828 (Version 2)
Quarter: 2020Q4

REPORT INFORMATION
  Report Type: Spontaneous
  Country: US (occurrence: US)
  Receive Date: 20201120
  Receipt Date: 20201125
  Transmission Date: 20210114
  Serious: Yes (Other)
  Sender: FDA-Public Use
  Company Number: US-ASTRAZENECA-2020SF41555

PATIENT
  Sex: Female

DRUGS (1)
  1. IMFINZI [Suspect]
     Active Substance: DURVALUMAB
     Route: 042

REACTIONS (6)
  - Feeling abnormal [Unknown]
  - Rash [Unknown]
  - Pneumonitis [Unknown]
  - Thyroid function test abnormal [Unknown]
  - Inflammation [Unknown]
  - Bone pain [Unknown]
